FAERS Safety Report 9696043 (Version 2)
Quarter: 2013Q4

REPORT INFORMATION
  Report Type: Spontaneous
  Country: US (occurrence: US)
  Receive Date: 20131119
  Receipt Date: 20131119
  Transmission Date: 20140711
  Serious: Yes (Hospitalization)
  Sender: FDA-Public Use
  Company Number: CHPA2013US017067

PATIENT
  Age: 79 Year
  Sex: Female

DRUGS (2)
  1. RITEAID PLP [Suspect]
     Indication: SMOKING CESSATION THERAPY
     Dosage: 21 MG, QD
     Route: 062
     Dates: start: 20131108
  2. RITEAID PLP [Suspect]
     Dosage: 14 MG; QD
     Route: 062
     Dates: start: 20131108, end: 20131110

REACTIONS (11)
  - Sinusitis [Recovering/Resolving]
  - Urinary tract infection [Recovering/Resolving]
  - Wheezing [Recovering/Resolving]
  - Cough [Recovering/Resolving]
  - Malaise [Recovering/Resolving]
  - Fatigue [Not Recovered/Not Resolved]
  - Application site pain [Not Recovered/Not Resolved]
  - Application site pruritus [Not Recovered/Not Resolved]
  - Nightmare [Unknown]
  - Balance disorder [Unknown]
  - Functional gastrointestinal disorder [Unknown]
